FAERS Safety Report 18923821 (Version 1)
Quarter: 2021Q1

REPORT INFORMATION
  Report Type: Report from Study
  Country: US (occurrence: US)
  Receive Date: 20210222
  Receipt Date: 20210222
  Transmission Date: 20210420
  Serious: Yes (Hospitalization)
  Sender: FDA-Public Use
  Company Number: US-EXELIXIS-XL18421037131

PATIENT

DRUGS (4)
  1. XL184 [Suspect]
     Active Substance: CABOZANTINIB
     Indication: HEPATOCELLULAR CARCINOMA
     Dosage: 40 MG, QD
     Route: 048
     Dates: start: 20201104, end: 20210128
  2. XL184 [Suspect]
     Active Substance: CABOZANTINIB
     Indication: METASTATIC GASTRIC CANCER
  3. DURVALUMAB. [Suspect]
     Active Substance: DURVALUMAB
     Indication: HEPATOCELLULAR CARCINOMA
     Dosage: 1500 MG, Q4WEEKS
     Route: 042
     Dates: start: 20201104, end: 20210212
  4. DURVALUMAB. [Suspect]
     Active Substance: DURVALUMAB
     Indication: METASTATIC GASTRIC CANCER

REACTIONS (4)
  - Pancreatitis [Not Recovered/Not Resolved]
  - Mental status changes [Unknown]
  - Dizziness [Unknown]
  - Presyncope [Unknown]

NARRATIVE: CASE EVENT DATE: 20210126
